FAERS Safety Report 5960311-5 (Version None)
Quarter: 2008Q4

REPORT INFORMATION
  Report Type: 
  Country: None (occurrence: None)
  Receive Date: 20081120
  Receipt Date: 20081110
  Transmission Date: 20090506
  Serious: Yes (Other)
  Sender: FDA-Public Use
  Company Number: US-SANOFI-SYNTHELABO-A03200700277

PATIENT
  Sex: Male

DRUGS (1)
  1. AMBIEN [Suspect]
     Indication: DRUG USE FOR UNKNOWN INDICATION
     Dosage: UNK
     Route: 048

REACTIONS (12)
  - AMNESIA [None]
  - ANXIETY [None]
  - ARTHRALGIA [None]
  - BRAIN CONTUSION [None]
  - COSTOCHONDRITIS [None]
  - DEPRESSION [None]
  - JOINT INJURY [None]
  - NEURITIS [None]
  - ROAD TRAFFIC ACCIDENT [None]
  - SKELETAL INJURY [None]
  - SLEEP-RELATED EATING DISORDER [None]
  - SOMNAMBULISM [None]
